FAERS Safety Report 20091845 (Version 1)
Quarter: 2021Q4

REPORT INFORMATION
  Report Type: Spontaneous
  Country: US (occurrence: None)
  Receive Date: 20211119
  Receipt Date: 20211119
  Transmission Date: 20220303
  Serious: Yes (Other)
  Sender: FDA-Public Use
  Company Number: None

PATIENT
  Age: 68 Year
  Sex: Female
  Weight: 53.55 kg

DRUGS (1)
  1. ICOSAPENT ETHYL [Suspect]
     Active Substance: ICOSAPENT ETHYL
     Indication: Blood cholesterol increased
     Dosage: OTHER QUANTITY : 1 CAPSULE(S);?FREQUENCY : TWICE A DAY;?
     Route: 048
     Dates: start: 20211027, end: 20211111

REACTIONS (6)
  - Malaise [None]
  - Chest discomfort [None]
  - Back pain [None]
  - Arthralgia [None]
  - Angina pectoris [None]
  - Asthenia [None]

NARRATIVE: CASE EVENT DATE: 20211111
